FAERS Safety Report 17585703 (Version 1)
Quarter: 2020Q1

REPORT INFORMATION
  Report Type: Spontaneous
  Country: NL (occurrence: NL)
  Receive Date: 20200326
  Receipt Date: 20200326
  Transmission Date: 20200409
  Serious: Yes (Other)
  Sender: FDA-Public Use
  Company Number: NL-TEVA-2020-NL-1211222

PATIENT
  Sex: Female
  Weight: 90 kg

DRUGS (15)
  1. HYDROCHLOORTHIAZIDE [Concomitant]
     Active Substance: HYDROCHLOROTHIAZIDE
     Dosage: 1DD25MG, 25 MG 1 DAYS
  2. APIXABAN (ONDERZOEKSVERBAND, KAN OOK PLACEBO ZIJN) [Concomitant]
     Dosage: 2DD 5MG OF 2,5MG, 1 DOSAGE FORMS 12 HOURS
  3. CITALOPRAM [Concomitant]
     Active Substance: CITALOPRAM HYDROBROMIDE
     Dosage: 1DD 20MG, 20 MG 1 DAYS
  4. PARACETAMOL [Concomitant]
     Active Substance: ACETAMINOPHEN
     Dosage: 3-4 DD 1000MG, 1000 MG
  5. LYRICA [Concomitant]
     Active Substance: PREGABALIN
     Dosage: 1DD 5MG, 5 MG 1 DAYS
  6. PROPANOL [Concomitant]
     Active Substance: PROPRANOLOL HYDROCHLORIDE
     Dosage: 3DD 10MG, 10 MG 8 HOURS
  7. TACAL D3 [Concomitant]
     Dosage: 1DD500MG, 500 MG 1 DAYS
  8. SULFASA (SULFASALAZINE) [Suspect]
     Active Substance: SULFASALAZINE
     Indication: RHEUMATOID ARTHRITIS
     Dosage: 1 PIECE TWICE A DAY, 1 DOSAGE FORMS 12 HOURS
     Dates: start: 20191213, end: 20200110
  9. ASPIRINE (ONDERZOEKSVERBAND, KAN OOK PLACEBO ZIJN) [Concomitant]
     Dosage: 1DD 80MG, 80 MG 1 DAYS
  10. VITAMINE A-Z [Concomitant]
     Dosage: 1DD1, 1 DOSAGE FORMS 1 DAYS
  11. KURKUMA/ZWARTE PEPER [Concomitant]
     Dosage: 1DD1, 1 DOSAGE FORMS 1 DAYS
  12. OMEPRAZOL [Concomitant]
     Active Substance: OMEPRAZOLE
     Dosage: 1DD40MG, 40 MG 1 DAYS
  13. HYDROXYZINE [Concomitant]
     Active Substance: HYDROXYZINE HYDROCHLORIDE
     Dosage: 1DD 75MG, 75 MG 1 DAYS
  14. BISACODIL [Concomitant]
     Dosage: 1DD15MG, 15 MG 1 DAYS
  15. TEMAZEPAM. [Concomitant]
     Active Substance: TEMAZEPAM
     Dosage: 1DD 20MG, 20 MG 1 DAYS

REACTIONS (1)
  - Polyneuropathy [Not Recovered/Not Resolved]
